FAERS Safety Report 5515697-2 (Version None)
Quarter: 2007Q4

REPORT INFORMATION
  Report Type: 
  Country: None (occurrence: None)
  Receive Date: 20071113
  Receipt Date: 20070830
  Transmission Date: 20080405
  Serious: No
  Sender: FDA-Public Use
  Company Number: A0677740A

PATIENT
  Age: 73 Year
  Sex: Male

DRUGS (11)
  1. COREG [Suspect]
     Indication: HYPERTENSION
     Route: 048
     Dates: start: 20051201
  2. SYNTHROID [Concomitant]
  3. DILTIAZEM [Concomitant]
  4. ALTACE [Concomitant]
  5. VYTORIN [Concomitant]
  6. JANUVIA [Concomitant]
  7. ACTOS [Concomitant]
  8. GLIMEPIRIDE [Concomitant]
  9. ASPIRIN [Concomitant]
  10. PROSCAR [Concomitant]
  11. VITAMIN [Concomitant]

REACTIONS (2)
  - DIPLOPIA [None]
  - EYELID PTOSIS [None]
